FAERS Safety Report 5870258-0 (Version None)
Quarter: 2008Q3

REPORT INFORMATION
  Report Type: 
  Country: None (occurrence: None)
  Receive Date: 20080904
  Receipt Date: 20070807
  Transmission Date: 20090109
  Serious: No
  Sender: FDA-Public Use
  Company Number: US-BRISTOL-MYERS SQUIBB COMPANY-13870571

PATIENT
  Age: 65 Year
  Sex: Male
  Weight: 145 kg

DRUGS (6)
  1. DEFINITY [Suspect]
     Indication: ECHOCARDIOGRAM
     Dates: start: 20070807, end: 20070807
  2. TOPROL-XL [Concomitant]
  3. LASIX [Concomitant]
  4. K-DUR [Concomitant]
  5. CENTRUM SILVER [Concomitant]
  6. FISH OIL [Concomitant]

REACTIONS (2)
  - BACK PAIN [None]
  - HYPOAESTHESIA [None]
